FAERS Safety Report 8006112-8 (Version None)
Quarter: 2011Q4

REPORT INFORMATION
  Report Type: 
  Country: None (occurrence: None)
  Receive Date: 20111226
  Receipt Date: 20111221
  Transmission Date: 20120403
  Serious: Yes (Death, Life-Threatening, Hospitalization)
  Sender: FDA-Public Use
  Company Number: FR-PFIZER INC-2011310048

PATIENT
  Age: 72 Year
  Sex: Female

DRUGS (1)
  1. SUTENT [Suspect]
     Dosage: 50 MG, 1X/DAY, 4 WEEKS ON 6
     Route: 048
     Dates: start: 20111027, end: 20111127

REACTIONS (2)
  - INFECTIOUS PERITONITIS [None]
  - LARGE INTESTINE PERFORATION [None]
